FAERS Safety Report 9301447 (Version 2)
Quarter: 2013Q2

REPORT INFORMATION
  Report Type: Spontaneous
  Country: JP (occurrence: JP)
  Receive Date: 20130520
  Receipt Date: 20130605
  Transmission Date: 20140414
  Serious: Yes (Life-Threatening, Hospitalization, Other)
  Sender: FDA-Public Use
  Company Number: JP-BRACCO-007058

PATIENT
  Age: 70 Year
  Sex: Male
  Weight: 69 kg

DRUGS (5)
  1. IOPAMIRON [Suspect]
     Indication: COMPUTERISED TOMOGRAM
     Route: 042
     Dates: start: 20130510, end: 20130510
  2. THYRADIN [Concomitant]
  3. MEVALOTIN [Concomitant]
  4. EXCELASE [Concomitant]
  5. NEXIUM [Concomitant]

REACTIONS (1)
  - Shock [Recovering/Resolving]
